FAERS Safety Report 11642280 (Version 1)
Quarter: 2015Q4

REPORT INFORMATION
  Report Type: Spontaneous
  Country: US (occurrence: US)
  Receive Date: 20151019
  Receipt Date: 20151019
  Transmission Date: 20160304
  Serious: No
  Sender: FDA-Public Use
  Company Number: US-ASTRAZENECA-2015SE99185

PATIENT
  Age: 21043 Day
  Sex: Female
  Weight: 59.4 kg

DRUGS (5)
  1. SYMBICORT [Suspect]
     Active Substance: BUDESONIDE\FORMOTEROL FUMARATE DIHYDRATE
     Indication: INFLAMMATION
     Dosage: 160/4.5 TWO PUFFS TWICE DAILY
     Route: 055
     Dates: start: 2015
  2. ALBUTEROL. [Suspect]
     Active Substance: ALBUTEROL
     Indication: WHEEZING
     Dosage: EVERY FOUR HOURS
     Route: 055
  3. TUDORZA PRESSAIR [Suspect]
     Active Substance: ACLIDINIUM BROMIDE
     Indication: EMPHYSEMA
     Dosage: 400 MCG, ONE PUFF TWICE DAILY
     Route: 055
     Dates: start: 2014
  4. ALBUTEROL. [Suspect]
     Active Substance: ALBUTEROL
     Indication: DYSPNOEA
     Dosage: EVERY FOUR HOURS
     Route: 055
  5. OXYGEN. [Concomitant]
     Active Substance: OXYGEN

REACTIONS (6)
  - Wheezing [Unknown]
  - Tremor [Unknown]
  - Off label use [Unknown]
  - Dyspnoea [Unknown]
  - Drug dose omission [Unknown]
  - Product quality issue [Unknown]

NARRATIVE: CASE EVENT DATE: 20151007
